FAERS Safety Report 19301463 (Version 3)
Quarter: 2021Q3

REPORT INFORMATION
  Report Type: Spontaneous
  Country: DE (occurrence: DE)
  Receive Date: 20210525
  Receipt Date: 20210716
  Transmission Date: 20211014
  Serious: Yes (Other)
  Sender: FDA-Public Use
  Company Number: DE-BAYER-2021-145322

PATIENT
  Age: 39 Year
  Sex: Female

DRUGS (1)
  1. ADEMPAS [Suspect]
     Active Substance: RIOCIGUAT
     Indication: PULMONARY HYPERTENSION

REACTIONS (2)
  - Pulmonary artery occlusion [Recovered/Resolved]
  - Pulmonary vascular disorder [Recovering/Resolving]

NARRATIVE: CASE EVENT DATE: 2017
